FAERS Safety Report 11788553 (Version 1)
Quarter: 2015Q4

REPORT INFORMATION
  Report Type: Spontaneous
  Country: US (occurrence: None)
  Receive Date: 20151130
  Receipt Date: 20151130
  Transmission Date: 20160305
  Serious: Yes (Disabling)
  Sender: FDA-Public Use
  Company Number: None

PATIENT
  Age: 70 Year
  Sex: Male
  Weight: 78.02 kg

DRUGS (8)
  1. DONEPEZIL 5 MG CADISTA [Suspect]
     Active Substance: DONEPEZIL
     Indication: DEMENTIA
     Route: 048
     Dates: start: 20151124, end: 20151127
  2. DONEPEZIL 5 MG CADISTA [Suspect]
     Active Substance: DONEPEZIL
     Indication: GAIT DISTURBANCE
     Route: 048
     Dates: start: 20151124, end: 20151127
  3. DEEP BRAIN STIMULATOR [Concomitant]
  4. MULTIVITAMIN [Concomitant]
     Active Substance: VITAMINS
  5. LUTEIN [Concomitant]
     Active Substance: LUTEIN
  6. MIRALAX [Concomitant]
     Active Substance: POLYETHYLENE GLYCOL 3350
  7. PROBIOTIC [Concomitant]
     Active Substance: PROBIOTICS NOS
  8. FISH OIL [Concomitant]
     Active Substance: FISH OIL

REACTIONS (1)
  - Somnolence [None]

NARRATIVE: CASE EVENT DATE: 20151125
